FAERS Safety Report 6101194-2 (Version None)
Quarter: 2009Q1

REPORT INFORMATION
  Report Type: 
  Country: None (occurrence: None)
  Receive Date: 20090304
  Receipt Date: 20090225
  Transmission Date: 20090719
  Serious: Yes (Other)
  Sender: FDA-Public Use
  Company Number: US-ELI_LILLY_AND_COMPANY-US200902007128

PATIENT
  Sex: Male

DRUGS (13)
  1. BYETTA [Suspect]
     Indication: TYPE 2 DIABETES MELLITUS
     Dosage: 5 UG, 2/D
     Route: 058
     Dates: start: 20060425, end: 20060501
  2. BYETTA [Suspect]
     Dosage: 10 UG, 2/D
     Route: 058
     Dates: start: 20060501
  3. SINGULAIR [Concomitant]
     Indication: ASTHMA
  4. PROTONIX [Concomitant]
     Indication: GASTROOESOPHAGEAL REFLUX DISEASE
  5. BENICAR [Concomitant]
     Indication: BLOOD PRESSURE INCREASED
  6. SULFASALAZINE [Concomitant]
     Indication: ABDOMINAL PAIN UPPER
     Dosage: UNK, DAILY (1/D)
     Route: 048
  7. UNIFYL [Concomitant]
     Indication: ABDOMINAL PAIN UPPER
     Dosage: 600 MG, DAILY (1/D)
     Route: 048
  8. POTASSIUM CHLORIDE [Concomitant]
     Indication: BLOOD POTASSIUM DECREASED
     Dosage: 20 MEQ, UNK
  9. COLCHICINE [Concomitant]
     Dosage: 0.6 MG, UNK
  10. HYDROCHLOROTHIAZIDE [Concomitant]
     Indication: BLOOD PRESSURE INCREASED
  11. DILANTIN [Concomitant]
     Indication: PARAESTHESIA
  12. SPIRONOLACTONE [Concomitant]
     Indication: BLOOD PRESSURE INCREASED
     Dosage: 50 MG, DAILY (1/D)
     Route: 048
  13. SPIRONOLACTONE [Concomitant]
     Dosage: 50 MG, DAILY (1/D)
     Route: 048

REACTIONS (9)
  - ASTHENIA [None]
  - BLOOD GLUCOSE INCREASED [None]
  - CONVULSION [None]
  - DYSGEUSIA [None]
  - KIDNEY INFECTION [None]
  - LOCALISED INFECTION [None]
  - MOOD ALTERED [None]
  - NAUSEA [None]
  - OEDEMA PERIPHERAL [None]
